FAERS Safety Report 8121261-1 (Version None)
Quarter: 2012Q1

REPORT INFORMATION
  Report Type: 
  Country: None (occurrence: None)
  Receive Date: 20120208
  Receipt Date: 20120203
  Transmission Date: 20120608
  Serious: Yes (Other)
  Sender: FDA-Public Use
  Company Number: US-BAYER-2012-011842

PATIENT
  Age: 79 Year
  Sex: Female
  Weight: 75 kg

DRUGS (1)
  1. ASPIRIN [Suspect]
     Indication: ARTHRITIS
     Dosage: 2 DF, PRN
     Route: 048
     Dates: start: 20120130, end: 20120130

REACTIONS (4)
  - BALANCE DISORDER [None]
  - INFLUENZA LIKE ILLNESS [None]
  - SOMNOLENCE [None]
  - MENTAL IMPAIRMENT [None]
